FAERS Safety Report 5350429-2 (Version None)
Quarter: 2007Q2

REPORT INFORMATION
  Report Type: 
  Country: None (occurrence: None)
  Receive Date: 20070605
  Receipt Date: 20070605
  Transmission Date: 20071010
  Serious: Yes (Death)
  Sender: FDA-Public Use
  Company Number: None

PATIENT
  Sex: Male
  Weight: 81.9 kg

DRUGS (1)
  1. RITUXIMAB [Suspect]
     Indication: HODGKIN'S DISEASE LYMPHOCYTE PREDOMINANCE TYPE STAGE UNSPECIFIED
     Dosage: 375 MG/M2 Q 6 MONTHS X 4 IV
     Route: 042
     Dates: start: 20031030, end: 20041213

REACTIONS (4)
  - ACUTE MYELOID LEUKAEMIA [None]
  - ADVERSE EVENT [None]
  - MYELODYSPLASTIC SYNDROME [None]
  - NO THERAPEUTIC RESPONSE [None]
